FAERS Safety Report 12847040 (Version 1)
Quarter: 2016Q4

REPORT INFORMATION
  Report Type: Spontaneous
  Country: US (occurrence: US)
  Receive Date: 20161014
  Receipt Date: 20161014
  Transmission Date: 20170207
  Serious: Yes (Hospitalization, Other)
  Sender: FDA-Public Use
  Company Number: US-CONCORDIA PHARMACEUTICALS INC.-GSH201610-005160

PATIENT
  Sex: Female

DRUGS (15)
  1. DIGOXIN. [Suspect]
     Active Substance: DIGOXIN
     Indication: PRODUCT USED FOR UNKNOWN INDICATION
  2. LYRICA [Suspect]
     Active Substance: PREGABALIN
     Indication: ABASIA
     Route: 048
     Dates: start: 2006
  3. GEMFIBROZIL. [Suspect]
     Active Substance: GEMFIBROZIL
     Indication: BLOOD CHOLESTEROL
  4. METOCLORPRAMIDE [Suspect]
     Active Substance: METOCLOPRAMIDE
     Indication: GASTRIC DISORDER
     Dates: start: 2015
  5. COREG [Suspect]
     Active Substance: CARVEDILOL
     Indication: CARDIAC DISORDER
     Route: 048
     Dates: start: 2011
  6. LASIX [Suspect]
     Active Substance: FUROSEMIDE
     Indication: FLUID RETENTION
  7. LIPITOR [Suspect]
     Active Substance: ATORVASTATIN CALCIUM
     Indication: PRODUCT USED FOR UNKNOWN INDICATION
     Route: 048
  8. LASIX [Suspect]
     Active Substance: FUROSEMIDE
     Indication: CARDIAC FAILURE
  9. VIMPAT [Suspect]
     Active Substance: LACOSAMIDE
     Indication: SEIZURE
     Dates: start: 201407
  10. OMEPRAZOLE. [Suspect]
     Active Substance: OMEPRAZOLE
     Indication: PRODUCT USED FOR UNKNOWN INDICATION
  11. XANAX [Suspect]
     Active Substance: ALPRAZOLAM
     Indication: PRODUCT USED FOR UNKNOWN INDICATION
     Route: 048
     Dates: start: 20151106
  12. KLOR-CON [Suspect]
     Active Substance: POTASSIUM CHLORIDE
     Indication: PRODUCT USED FOR UNKNOWN INDICATION
  13. FLUDROCORTISONE [Suspect]
     Active Substance: FLUDROCORTISONE
     Indication: PRODUCT USED FOR UNKNOWN INDICATION
     Dosage: EVERY 72 HOURS
  14. LYRICA [Suspect]
     Active Substance: PREGABALIN
     Dates: start: 20160309
  15. PROZAC [Suspect]
     Active Substance: FLUOXETINE HYDROCHLORIDE
     Indication: PRODUCT USED FOR UNKNOWN INDICATION
     Dates: start: 2011

REACTIONS (18)
  - Nerve injury [Recovered/Resolved]
  - Nausea [Not Recovered/Not Resolved]
  - Malaise [Unknown]
  - Adverse event [Unknown]
  - Cardiac failure congestive [Not Recovered/Not Resolved]
  - Transient ischaemic attack [Unknown]
  - Gait disturbance [Unknown]
  - Respiratory failure [Not Recovered/Not Resolved]
  - Decreased appetite [Unknown]
  - Seizure [Recovered/Resolved]
  - Abasia [Recovered/Resolved]
  - Renal failure [Unknown]
  - Weight decreased [Unknown]
  - Pulmonary thrombosis [Recovered/Resolved]
  - Cerebrovascular accident [Unknown]
  - Fall [Not Recovered/Not Resolved]
  - Adrenal insufficiency [Not Recovered/Not Resolved]
  - Loss of consciousness [Unknown]

NARRATIVE: CASE EVENT DATE: 2006
